FAERS Safety Report 4315837-7 (Version None)
Quarter: 2004Q1

REPORT INFORMATION
  Report Type: 
  Country: None (occurrence: None)
  Receive Date: 20040310
  Receipt Date: 20040303
  Transmission Date: 20041129
  Serious: Yes (Hospitalization)
  Sender: FDA-Public Use
  Company Number: MK200402-0235-2

PATIENT
  Age: 23 Year
  Sex: Male

DRUGS (9)
  1. ANAFRANIL CAP [Suspect]
     Dates: start: 19990328
  2. MELLARIL [Suspect]
     Dosage: ONE TIME DOSE
     Dates: start: 19990328
  3. LEXOTAN [Suspect]
     Dosage: ONE TIME DOSE
     Dates: start: 19990328
  4. PROMETHAZINE HCL [Suspect]
     Dosage: ONE TIME DOSE
     Dates: start: 19990328
  5. VITAMIN A [Suspect]
     Dosage: ONE TIME DOSE
     Dates: start: 19990328
  6. HIRNAMIN [Suspect]
     Dosage: ONE TIME DOSE
     Dates: start: 19990328
  7. ISOMYTAL [Suspect]
     Dosage: ONE TIME DOSE
     Dates: start: 19990328
  8. HALCION [Suspect]
     Dosage: ONE TIME DOSE
     Dates: start: 19990328
  9. RITALIN [Suspect]
     Dosage: ONE TIME DOSE
     Dates: start: 19990328

REACTIONS (11)
  - CARDIAC ARREST [None]
  - CARDIAC FIBRILLATION [None]
  - HYPOTHERMIA [None]
  - LOSS OF CONSCIOUSNESS [None]
  - MYDRIASIS [None]
  - OEDEMATOUS PANCREATITIS [None]
  - OVERDOSE [None]
  - PANCREATIC PSEUDOCYST [None]
  - PANCREATITIS ACUTE [None]
  - PUPIL FIXED [None]
  - SUICIDE ATTEMPT [None]
